FAERS Safety Report 9781345 (Version 1)
Quarter: 2013Q4

REPORT INFORMATION
  Report Type: Spontaneous
  Country: US (occurrence: None)
  Receive Date: 20131223
  Receipt Date: 20131223
  Transmission Date: 20140711
  Serious: Yes (Life-Threatening, Hospitalization, Disabling)
  Sender: FDA-Public Use
  Company Number: None

PATIENT
  Age: 89 Year
  Sex: Female
  Weight: 62 kg

DRUGS (1)
  1. WARFARIN 3 MG TABLETS [Suspect]
     Indication: SPLENIC INFARCTION
     Dosage: 1 PILL, VARIES, ORAL
     Route: 048

REACTIONS (3)
  - Tachycardia [None]
  - Hypotension [None]
  - International normalised ratio increased [None]
